FAERS Safety Report 5653262-7 (Version None)
Quarter: 2008Q1

REPORT INFORMATION
  Report Type: 
  Country: None (occurrence: None)
  Receive Date: 20080131
  Receipt Date: 20071022
  Transmission Date: 20080703
  Serious: No
  Sender: FDA-Public Use
  Company Number: US200710005627

PATIENT
  Age: 60 Year
  Sex: Male
  Weight: 131.5 kg

DRUGS (14)
  1. BYETTA [Suspect]
     Indication: TYPE 2 DIABETES MELLITUS
     Dosage: 5 UG, 2/D, SUBCUTANEOUS ; 10 UG, 2/D, SUBCUTANEOUS
     Route: 058
     Dates: start: 20070901, end: 20071001
  2. BYETTA [Suspect]
     Indication: TYPE 2 DIABETES MELLITUS
     Dosage: 5 UG, 2/D, SUBCUTANEOUS ; 10 UG, 2/D, SUBCUTANEOUS
     Route: 058
     Dates: start: 20071001
  3. COUMADIN [Concomitant]
  4. NOVOLOG [Concomitant]
  5. METFORMIN HCL [Concomitant]
  6. TOPROL-XL [Concomitant]
  7. BENICAR [Concomitant]
  8. PROTONIX [Concomitant]
  9. CARDIZEM CD [Concomitant]
  10. ACTIGALL [Concomitant]
  11. AMIODARONE HCL [Concomitant]
  12. PAXIL [Concomitant]
  13. CRESTOR [Concomitant]
  14. LOTREL [Concomitant]

REACTIONS (5)
  - NAUSEA [None]
  - PRURITUS [None]
  - RASH ERYTHEMATOUS [None]
  - TOOTH ABSCESS [None]
  - WEIGHT DECREASED [None]
